FAERS Safety Report 9674957 (Version 1)
Quarter: 2013Q4

REPORT INFORMATION
  Report Type: Spontaneous
  Country: US (occurrence: None)
  Receive Date: 20131106
  Receipt Date: 20131106
  Transmission Date: 20140711
  Serious: Yes (Hospitalization)
  Sender: FDA-Public Use
  Company Number: None

PATIENT
  Age: 54 Year
  Sex: Male
  Weight: 90.27 kg

DRUGS (2)
  1. XARELTO [Suspect]
     Indication: THROMBOSIS PROPHYLAXIS
     Route: 048
     Dates: start: 20130917, end: 20130922
  2. VICODIN [Concomitant]

REACTIONS (5)
  - Joint swelling [None]
  - Erythema [None]
  - Skin discolouration [None]
  - Infection [None]
  - Ecchymosis [None]
